FAERS Safety Report 5257880-X (Version None)
Quarter: 2007Q1

REPORT INFORMATION
  Report Type: 
  Country: None (occurrence: None)
  Receive Date: 20070307
  Receipt Date: 20061003
  Transmission Date: 20070707
  Serious: No
  Sender: FDA-Public Use
  Company Number: US-GLAXOSMITHKLINE-A0622312A

PATIENT
  Sex: Female

DRUGS (5)
  1. REQUIP [Suspect]
     Indication: RESTLESS LEGS SYNDROME
     Dosage: 1MG FOUR TIMES PER DAY
     Route: 048
     Dates: start: 20030101
  2. LOPRESSOR [Concomitant]
  3. LEXAPRO [Concomitant]
  4. DIGOXIN [Concomitant]
  5. MOBIC [Concomitant]

REACTIONS (1)
  - DRUG INEFFECTIVE [None]
